FAERS Safety Report 21086726 (Version 1)
Quarter: 2022Q3

REPORT INFORMATION
  Report Type: Spontaneous
  Country: US (occurrence: US)
  Receive Date: 20220715
  Receipt Date: 20220715
  Transmission Date: 20221027
  Serious: Yes (Other)
  Sender: FDA-Public Use
  Company Number: US-SA-SAC20220712000750

PATIENT
  Age: 64 Year
  Sex: Male

DRUGS (2)
  1. ZANTAC [Suspect]
     Active Substance: RANITIDINE HYDROCHLORIDE
     Indication: Dyspepsia
     Dosage: 75 MG QD
     Dates: start: 201001
  2. ZANTAC [Suspect]
     Active Substance: RANITIDINE HYDROCHLORIDE
     Dosage: 150 MG QD
     Dates: end: 201601

REACTIONS (2)
  - Renal cancer stage IV [Unknown]
  - Prostate cancer [Unknown]

NARRATIVE: CASE EVENT DATE: 20200901
